FAERS Safety Report 25207163 (Version 1)
Quarter: 2025Q2

REPORT INFORMATION
  Report Type: Spontaneous
  Country: ES (occurrence: ES)
  Receive Date: 20250417
  Receipt Date: 20250417
  Transmission Date: 20250716
  Serious: Yes (Life-Threatening, Other)
  Sender: ORGANON
  Company Number: None

PATIENT
  Age: 39 Year
  Sex: Male
  Weight: 85 kg

DRUGS (1)
  1. PROSCAR [Suspect]
     Active Substance: FINASTERIDE
     Indication: Alopecia
     Route: 048
     Dates: start: 20100408, end: 20100408

REACTIONS (3)
  - Erectile dysfunction [Unknown]
  - Suicidal ideation [Unknown]
  - Mental fatigue [Unknown]

NARRATIVE: CASE EVENT DATE: 20120404
